FAERS Safety Report 16355855 (Version 1)
Quarter: 2019Q2

REPORT INFORMATION
  Report Type: Spontaneous
  Country: GB (occurrence: GB)
  Receive Date: 20190526
  Receipt Date: 20190526
  Transmission Date: 20190711
  Serious: Yes (Hospitalization)
  Sender: FDA-Public Use
  Company Number: GB-DEXPHARM-20190364

PATIENT
  Sex: Male

DRUGS (1)
  1. VOLTAROL [Suspect]
     Active Substance: DICLOFENAC SODIUM
     Indication: PRODUCT USED FOR UNKNOWN INDICATION
     Dosage: UNK

REACTIONS (3)
  - Pain [Not Recovered/Not Resolved]
  - Drug ineffective [Unknown]
  - Adverse reaction [Unknown]
